FAERS Safety Report 6109340-1 (Version None)
Quarter: 2009Q1

REPORT INFORMATION
  Report Type: 
  Country: None (occurrence: None)
  Receive Date: 20090306
  Receipt Date: 20090306
  Transmission Date: 20090719
  Serious: Yes (Death, Hospitalization)
  Sender: FDA-Public Use
  Company Number: None

PATIENT
  Age: 80 Year
  Sex: Female
  Weight: 63.5036 kg

DRUGS (1)
  1. FOSAMAX [Suspect]
     Indication: OSTEOPOROSIS
     Dosage: 70 MG -1 PILL- 1 TIME PER WEEK PO
     Route: 048

REACTIONS (3)
  - MALIGNANT NEOPLASM PROGRESSION [None]
  - MUSCLE SPASMS [None]
  - PNEUMONIA [None]
